FAERS Safety Report 17499418 (Version 1)
Quarter: 2020Q1

REPORT INFORMATION
  Report Type: Spontaneous
  Country: US (occurrence: US)
  Receive Date: 20200305
  Receipt Date: 20200305
  Transmission Date: 20200409
  Serious: No
  Sender: FDA-Public Use
  Company Number: US-SHIRE-US202008370

PATIENT
  Age: 63 Year
  Sex: Female

DRUGS (1)
  1. HYQVIA [Suspect]
     Active Substance: HUMAN IMMUNOGLOBULIN G\HYALURONIDASE RECOMBINANT HUMAN
     Indication: PRIMARY IMMUNODEFICIENCY SYNDROME
     Dosage: 32 GRAM
     Route: 058
     Dates: start: 20191217

REACTIONS (7)
  - Constipation [Unknown]
  - Disturbance in attention [Unknown]
  - Alopecia [Unknown]
  - Fatigue [Unknown]
  - Headache [Unknown]
  - Feeling abnormal [Unknown]
  - Back pain [Unknown]

NARRATIVE: CASE EVENT DATE: 20191223
